FAERS Safety Report 16530023 (Version 1)
Quarter: 2019Q3

REPORT INFORMATION
  Report Type: Spontaneous
  Country: DE (occurrence: DE)
  Receive Date: 20190704
  Receipt Date: 20190704
  Transmission Date: 20191004
  Serious: Yes (Hospitalization)
  Sender: FDA-Public Use
  Company Number: DE-TEVA-2019-DE-1073173

PATIENT
  Age: 74 Year
  Sex: Female

DRUGS (11)
  1. OPIPRAMOL [Concomitant]
     Active Substance: OPIPRAMOL
     Dosage: 100 MG, 0.5-0-1-0
  2. BUDESONIDE. [Concomitant]
     Active Substance: BUDESONIDE
     Dosage: 2-0-2-0
  3. COLECALCIFEROL [Concomitant]
     Active Substance: CHOLECALCIFEROL
     Dosage: 1000 IE, 1-0-1-0
  4. SULTANOL [Concomitant]
     Active Substance: ALBUTEROL SULFATE
     Dosage: 3-3-3-3, TROPFEN
     Route: 055
  5. MOVICOL [Concomitant]
     Active Substance: POLYETHYLENE GLYCOL 3350\POTASSIUM CHLORIDE\SODIUM BICARBONATE\SODIUM CHLORIDE
  6. OXYCODONE [Suspect]
     Active Substance: OXYCODONE
     Dosage: 20 MG, 1-1-1-0
  7. EDOXABAN [Concomitant]
     Active Substance: EDOXABAN TOSYLATE
     Dosage: 60 MG, 1-0-0-0
  8. RANOLAZINE. [Suspect]
     Active Substance: RANOLAZINE
     Dosage: 375 MG, 1-0-1-0
  9. PANTOPRAZOL [Concomitant]
     Active Substance: PANTOPRAZOLE SODIUM
     Dosage: 40 MG, 1-0-0-0
  10. LEVOTHYROXINE SODIUM. [Concomitant]
     Active Substance: LEVOTHYROXINE SODIUM
     Dosage: 100 ?G, 1-0-0-0
  11. ATROVENT [Concomitant]
     Active Substance: IPRATROPIUM BROMIDE
     Dosage: 20 HUB, 1-1-1-1
     Route: 055

REACTIONS (7)
  - Nausea [Unknown]
  - Weight decreased [Unknown]
  - Vomiting [Unknown]
  - Decreased appetite [Unknown]
  - Dyspnoea [Unknown]
  - Constipation [Unknown]
  - Cough [Unknown]
